FAERS Safety Report 9723252 (Version 4)
Quarter: 2013Q4

REPORT INFORMATION
  Report Type: Spontaneous
  Country: US (occurrence: US)
  Receive Date: 20131202
  Receipt Date: 20131226
  Transmission Date: 20140711
  Serious: Yes (Hospitalization)
  Sender: FDA-Public Use
  Company Number: US-JNJFOC-20131114863

PATIENT
  Age: 72 Year
  Sex: Male
  Weight: 62.1 kg

DRUGS (6)
  1. XARELTO [Suspect]
     Indication: CEREBROVASCULAR ACCIDENT PROPHYLAXIS
     Route: 048
     Dates: start: 20130620, end: 20130717
  2. XARELTO [Suspect]
     Indication: DEEP VEIN THROMBOSIS
     Route: 048
     Dates: start: 20130620, end: 20130717
  3. XARELTO [Suspect]
     Indication: PROTEIN DEFICIENCY
     Route: 048
     Dates: start: 20130620, end: 20130717
  4. XARELTO [Suspect]
     Indication: FACTOR V LEIDEN MUTATION
     Route: 048
     Dates: start: 20130620, end: 20130717
  5. ASPIRIN [Suspect]
     Indication: PRODUCT USED FOR UNKNOWN INDICATION
     Route: 048
  6. FLUCONAZOLE [Concomitant]
     Indication: COCCIDIOIDOMYCOSIS
     Route: 048

REACTIONS (4)
  - Subdural haematoma [Unknown]
  - Tumour haemorrhage [Unknown]
  - Haemoglobin decreased [Unknown]
  - Incorrect dose administered [Unknown]
